FAERS Safety Report 18290860 (Version 1)
Quarter: 2020Q3

REPORT INFORMATION
  Report Type: Spontaneous
  Country: US (occurrence: US)
  Receive Date: 20200922
  Receipt Date: 20200922
  Transmission Date: 20201103
  Serious: No
  Sender: FDA-Public Use
  Company Number: US-SA-2020SA258350

PATIENT

DRUGS (2)
  1. MAGNESIUM (SALT NOT SPECIFIED) [Interacting]
     Active Substance: MAGNESIUM
     Dosage: UNK
  2. XYZAL [Suspect]
     Active Substance: LEVOCETIRIZINE DIHYDROCHLORIDE
     Indication: INGROWING NAIL
     Dosage: UNK

REACTIONS (3)
  - Heart rate irregular [Unknown]
  - Potentiating drug interaction [Unknown]
  - Chest discomfort [Unknown]
